FAERS Safety Report 6438861-7 (Version None)
Quarter: 2009Q4

REPORT INFORMATION
  Report Type: 
  Country: None (occurrence: None)
  Receive Date: 20091110
  Receipt Date: 20091030
  Transmission Date: 20100525
  Serious: Yes (Death)
  Sender: FDA-Public Use
  Company Number: DSA_41911_2009

PATIENT
  Sex: Female

DRUGS (1)
  1. XENAZINE [Suspect]
     Indication: HUNTINGTON'S CHOREA
     Dosage: (25 MG BID ORAL)
     Route: 048
     Dates: start: 20090319, end: 20090101

REACTIONS (1)
  - PNEUMONIA [None]
